FAERS Safety Report 18851354 (Version 1)
Quarter: 2021Q1

REPORT INFORMATION
  Report Type: Spontaneous
  Country: US (occurrence: US)
  Receive Date: 20210204
  Receipt Date: 20210204
  Transmission Date: 20210420
  Serious: Yes (Hospitalization)
  Sender: FDA-Public Use
  Company Number: None

PATIENT
  Sex: Female

DRUGS (12)
  1. POTASSIUM [Concomitant]
     Active Substance: POTASSIUM
  2. SILDENAFIL. [Suspect]
     Active Substance: SILDENAFIL
     Indication: CHRONIC KIDNEY DISEASE
     Route: 048
  3. BUMETANIDE. [Concomitant]
     Active Substance: BUMETANIDE
  4. VITAMIN D [Concomitant]
     Active Substance: VITAMIN D NOS
  5. LACTULOSE. [Concomitant]
     Active Substance: LACTULOSE
  6. METFORMIN [Concomitant]
     Active Substance: METFORMIN HYDROCHLORIDE
  7. SILDENAFIL. [Concomitant]
     Active Substance: SILDENAFIL
  8. TYVASO [Concomitant]
     Active Substance: TREPROSTINIL
  9. XIFAXAN [Concomitant]
     Active Substance: RIFAXIMIN
  10. CALCITRIOL. [Concomitant]
     Active Substance: CALCITRIOL
  11. GABAPENTIN. [Concomitant]
     Active Substance: GABAPENTIN
  12. OMEPRAZOLE. [Concomitant]
     Active Substance: OMEPRAZOLE

REACTIONS (5)
  - Hepatic cirrhosis [None]
  - Fatigue [None]
  - Therapy interrupted [None]
  - Nausea [None]
  - Balance disorder [None]
